FAERS Safety Report 4290282-1 (Version None)
Quarter: 2004Q1

REPORT INFORMATION
  Report Type: 
  Country: None (occurrence: None)
  Receive Date: 20040206
  Receipt Date: 20040206
  Transmission Date: 20041129
  Serious: No
  Sender: FDA-Public Use
  Company Number: None

PATIENT
  Age: 47 Year
  Sex: Female
  Weight: 80.7403 kg

DRUGS (3)
  1. NARDIL [Suspect]
     Indication: DEPRESSION
     Dosage: 2 TABLET TWICE PER ORAL
     Route: 048
     Dates: start: 20020901, end: 20040205
  2. TRAZODONE HCL [Concomitant]
  3. DIAZEPAM [Concomitant]

REACTIONS (5)
  - DEPRESSION [None]
  - DYSGEUSIA [None]
  - PANIC REACTION [None]
  - PHARMACEUTICAL PRODUCT COMPLAINT [None]
  - WEIGHT INCREASED [None]
